FAERS Safety Report 9298608 (Version 2)
Quarter: 2013Q3

REPORT INFORMATION
  Report Type: Spontaneous
  Country: US (occurrence: US)
  Receive Date: 20130520
  Receipt Date: 20130722
  Transmission Date: 20140515
  Serious: No
  Sender: FDA-Public Use
  Company Number: US-ELI_LILLY_AND_COMPANY-US201305004248

PATIENT
  Sex: Male
  Weight: 88.44 kg

DRUGS (2)
  1. CYMBALTA [Suspect]
     Indication: MYALGIA
     Dosage: 30 MG, UNKNOWN
     Dates: start: 2007, end: 201209
  2. CYMBALTA [Suspect]
     Dosage: UNK
     Dates: start: 201210

REACTIONS (1)
  - Blood bilirubin increased [Unknown]
